FAERS Safety Report 23769875 (Version 4)
Quarter: 2024Q3

REPORT INFORMATION
  Report Type: Spontaneous
  Country: US (occurrence: US)
  Receive Date: 20240422
  Receipt Date: 20240701
  Transmission Date: 20241017
  Serious: No
  Sender: KARYOPHARM THERAPEUTICS
  Company Number: US-KARYOPHARM-2024KPT000891

PATIENT

DRUGS (11)
  1. XPOVIO [Suspect]
     Active Substance: SELINEXOR
     Indication: Plasma cell myeloma
     Dosage: 100 MG, WEEKLY
     Route: 048
     Dates: start: 20240404, end: 202406
  2. XPOVIO [Suspect]
     Active Substance: SELINEXOR
     Dosage: 100 MG, 2X/WEEK
     Route: 048
     Dates: start: 202406, end: 202406
  3. ZOFRAN [Concomitant]
     Active Substance: ONDANSETRON HYDROCHLORIDE
  4. DEXAMETHASONE [Concomitant]
     Active Substance: DEXAMETHASONE
  5. ELIQUIS [Concomitant]
     Active Substance: APIXABAN
  6. FINASTERIDE [Concomitant]
     Active Substance: FINASTERIDE
  7. MAGNESIUM MALATE [Concomitant]
     Active Substance: MAGNESIUM MALATE
  8. SIMVASTATIN [Concomitant]
     Active Substance: SIMVASTATIN
  9. TAMSULOSIN [Concomitant]
     Active Substance: TAMSULOSIN
  10. VELCADE [Concomitant]
     Active Substance: BORTEZOMIB
  11. ASPIRIN [Concomitant]
     Active Substance: ASPIRIN

REACTIONS (7)
  - Abdominal discomfort [Unknown]
  - Muscle spasms [Unknown]
  - Dyspepsia [Unknown]
  - Plasma cell myeloma [Unknown]
  - Nausea [Not Recovered/Not Resolved]
  - Constipation [Unknown]
  - Decreased appetite [Not Recovered/Not Resolved]

NARRATIVE: CASE EVENT DATE: 20240401
